FAERS Safety Report 6231200-6 (Version None)
Quarter: 2009Q2

REPORT INFORMATION
  Report Type: 
  Country: None (occurrence: None)
  Receive Date: 20090616
  Receipt Date: 20090610
  Transmission Date: 20091009
  Serious: Yes (Death, Hospitalization, Other)
  Sender: FDA-Public Use
  Company Number: IL-CELGENEUS-082-50794-09060729

PATIENT
  Sex: Male

DRUGS (2)
  1. VIDAZA [Suspect]
     Route: 058
     Dates: start: 20090524, end: 20090524
  2. WHOLE BLOOD [Concomitant]
     Indication: DRUG USE FOR UNKNOWN INDICATION
     Route: 051

REACTIONS (4)
  - ACUTE MYELOID LEUKAEMIA [None]
  - CHILLS [None]
  - HEPATIC FAILURE [None]
  - MYELODYSPLASTIC SYNDROME TRANSFORMATION [None]
